FAERS Safety Report 6534051-8 (Version None)
Quarter: 2010Q1

REPORT INFORMATION
  Report Type: 
  Country: None (occurrence: None)
  Receive Date: 20100112
  Receipt Date: 20090813
  Transmission Date: 20100710
  Serious: Yes (Disabling, Other)
  Sender: FDA-Public Use
  Company Number: US-BAYER-200215214BWH

PATIENT
  Age: 43 Year
  Sex: Male

DRUGS (4)
  1. BAYCOL [Suspect]
     Indication: BLOOD CHOLESTEROL INCREASED
     Route: 048
     Dates: end: 20010601
  2. ATENOLOL [Concomitant]
     Indication: HYPERTENSION
  3. WELCHOL [Concomitant]
  4. LIPITOR [Concomitant]

REACTIONS (16)
  - ARTHRALGIA [None]
  - BLOOD DISORDER [None]
  - BLOOD PRESSURE DIASTOLIC INCREASED [None]
  - CHROMATURIA [None]
  - CONDITION AGGRAVATED [None]
  - HYPERTENSION [None]
  - LIVER DISORDER [None]
  - MALAISE [None]
  - MUSCLE DISORDER [None]
  - MUSCLE SPASMS [None]
  - ORAL PAIN [None]
  - PAIN IN EXTREMITY [None]
  - POISONING [None]
  - RENAL DISORDER [None]
  - TOOTH FRACTURE [None]
  - UNEVALUABLE EVENT [None]
